FAERS Safety Report 7660957-2 (Version None)
Quarter: 2011Q3

REPORT INFORMATION
  Report Type: 
  Country: None (occurrence: None)
  Receive Date: 20110805
  Receipt Date: 20101008
  Transmission Date: 20111222
  Serious: No
  Sender: FDA-Public Use
  Company Number: US-ABBOTT-10P-163-0677098-00

PATIENT
  Sex: Female

DRUGS (1)
  1. NIASPAN [Suspect]
     Indication: PRODUCT USED FOR UNKNOWN INDICATION
     Dates: start: 20100802, end: 20100913

REACTIONS (4)
  - BLOOD GLUCOSE INCREASED [None]
  - FUNGAL INFECTION [None]
  - PARAESTHESIA [None]
  - POLLAKIURIA [None]
